FAERS Safety Report 16949926 (Version 1)
Quarter: 2019Q4

REPORT INFORMATION
  Report Type: Spontaneous
  Country: IT (occurrence: IT)
  Receive Date: 20191023
  Receipt Date: 20191023
  Transmission Date: 20200122
  Serious: Yes (Other)
  Sender: FDA-Public Use
  Company Number: IT-TEVA-2019-IT-1124965

PATIENT
  Age: 64 Year
  Sex: Male

DRUGS (4)
  1. LISINOPRIL. [Concomitant]
     Active Substance: LISINOPRIL
  2. AMLODIPINE [Concomitant]
     Active Substance: AMLODIPINE BESYLATE
  3. QUETIAPINE. [Suspect]
     Active Substance: QUETIAPINE
     Indication: ACUTE PSYCHOSIS
     Dosage: 75 MG
     Route: 048
  4. DEPAKIN 500 MG COMPRESSE GASTRORESISTENTI [Suspect]
     Active Substance: VALPROATE SODIUM
     Indication: PSYCHOMOTOR HYPERACTIVITY
     Dosage: 500 MG
     Route: 048

REACTIONS (3)
  - Psychotic disorder [Recovering/Resolving]
  - Therapy non-responder [Recovering/Resolving]
  - Psychomotor hyperactivity [Recovering/Resolving]

NARRATIVE: CASE EVENT DATE: 20190304
